FAERS Safety Report 18553192 (Version 4)
Quarter: 2021Q1

REPORT INFORMATION
  Report Type: Report from Study
  Country: CA (occurrence: CA)
  Receive Date: 20201127
  Receipt Date: 20210225
  Transmission Date: 20210419
  Serious: Yes (Other)
  Sender: FDA-Public Use
  Company Number: CA-JNJFOC-20201139716

PATIENT
  Age: 61 Year
  Sex: Female

DRUGS (3)
  1. REMICADE [Suspect]
     Active Substance: INFLIXIMAB
     Indication: CROHN^S DISEASE
     Route: 042
     Dates: start: 20201106
  2. REMICADE [Suspect]
     Active Substance: INFLIXIMAB
     Route: 042
  3. DILAUDID [Suspect]
     Active Substance: HYDROMORPHONE HYDROCHLORIDE
     Indication: PAIN
     Dosage: 1 TO 3 PILLS EVERY 4 HOURS
     Route: 048
     Dates: start: 2021

REACTIONS (8)
  - Post procedural infection [Recovered/Resolved]
  - Haematochezia [Recovered/Resolved]
  - Oropharyngeal pain [Unknown]
  - Pharyngeal swelling [Unknown]
  - Ageusia [Unknown]
  - Constipation [Unknown]
  - Throat cancer [Not Recovered/Not Resolved]
  - Radiation skin injury [Recovering/Resolving]

NARRATIVE: CASE EVENT DATE: 20201118
